FAERS Safety Report 20219006 (Version 1)
Quarter: 2021Q4

REPORT INFORMATION
  Report Type: Spontaneous
  Country: US (occurrence: US)
  Receive Date: 20211222
  Receipt Date: 20211222
  Transmission Date: 20220303
  Serious: No
  Sender: FDA-Public Use
  Company Number: US-BIOHAVEN PHARMACEUTICALS-2021BHV01128

PATIENT
  Age: 64 Year
  Sex: Female
  Weight: 77.551 kg

DRUGS (4)
  1. NURTEC ODT [Suspect]
     Active Substance: RIMEGEPANT SULFATE
     Dosage: 75 MG, AS NEEDED?TREATMENT START STOP DATE:22-07-21//
     Route: 048
     Dates: start: 20210722
  2. PROPRANOLOL [Concomitant]
     Active Substance: PROPRANOLOL HYDROCHLORIDE
  3. RANEXA [Concomitant]
     Active Substance: RANOLAZINE
  4. A LOT OF VITAMIN SUPPLEMENTS [Concomitant]

REACTIONS (1)
  - Toothache [Recovered/Resolved]

NARRATIVE: CASE EVENT DATE: 20210727
